FAERS Safety Report 5321690-5 (Version None)
Quarter: 2007Q2

REPORT INFORMATION
  Report Type: 
  Country: None (occurrence: None)
  Receive Date: 20070510
  Receipt Date: 20070501
  Transmission Date: 20071010
  Serious: Yes (Other)
  Sender: FDA-Public Use
  Company Number: GB-PFIZER INC-2007028115

PATIENT
  Age: 38 Year
  Sex: Female

DRUGS (15)
  1. SILDENAFIL (PAH) [Suspect]
     Indication: HYPERTENSION
     Route: 048
  2. SILDENAFIL (PAH) [Suspect]
     Indication: PULMONARY HYPERTENSION
  3. VIAGRA [Concomitant]
     Route: 048
  4. AMIODARONE HCL [Concomitant]
     Route: 048
  5. CARVEDILOL [Concomitant]
     Route: 048
  6. DIGOXIN [Concomitant]
     Route: 048
  7. ACETYLSALICYLIC ACID SRT [Concomitant]
     Route: 048
  8. ENALAPRIL [Concomitant]
     Route: 048
  9. FRUSEMIDE [Concomitant]
     Route: 048
  10. SPIRONOLACTONE [Concomitant]
     Route: 048
  11. ALL OTHER THERAPEUTIC PRODUCTS [Concomitant]
     Route: 048
  12. TEMAZEPAM [Concomitant]
     Route: 048
  13. MEBEVERINE [Concomitant]
     Route: 048
  14. PAROXETINE [Concomitant]
     Route: 048
  15. FOSAVANCE [Concomitant]
     Route: 048

REACTIONS (4)
  - EXERCISE TOLERANCE DECREASED [None]
  - HEADACHE [None]
  - MALAISE [None]
  - PALPITATIONS [None]
